FAERS Safety Report 9302975 (Version 1)
Quarter: 2013Q2

REPORT INFORMATION
  Report Type: Report from Study
  Country: DE (occurrence: DE)
  Receive Date: 20130522
  Receipt Date: 20130522
  Transmission Date: 20140414
  Serious: Yes (Other)
  Sender: FDA-Public Use
  Company Number: DE-BRISTOL-MYERS SQUIBB COMPANY-18896670

PATIENT
  Age: 59 Year
  Sex: Female
  Weight: 59.4 kg

DRUGS (3)
  1. CARBOPLATIN [Suspect]
     Indication: OVARIAN CANCER
     Dosage: 5 AUC LAST DOSE:21DEC12
     Route: 042
     Dates: start: 20121109
  2. PACLITAXEL [Suspect]
     Indication: OVARIAN CANCER
     Dosage: INTER ON:11JAN2013. (64 DAYS)09NOV12-21DEC12(43 DAYS)
     Route: 042
     Dates: start: 20121109, end: 20130111
  3. BEVACIZUMAB [Suspect]
     Indication: OVARIAN CANCER
     Dosage: LAST DOSE:21DEC12
     Route: 042
     Dates: start: 20121130

REACTIONS (1)
  - Ataxia [Recovered/Resolved]
